FAERS Safety Report 25905206 (Version 3)
Quarter: 2025Q4

REPORT INFORMATION
  Report Type: Spontaneous
  Country: US (occurrence: US)
  Receive Date: 20251010
  Receipt Date: 20251014
  Transmission Date: 20260117
  Serious: Yes (Hospitalization)
  Sender: SANOFI AVENTIS
  Company Number: US-SA-2025SA300072

PATIENT
  Age: 66 Year
  Sex: Female

DRUGS (2)
  1. DUPIXENT [Suspect]
     Active Substance: DUPILUMAB
     Indication: Bronchitis
     Dosage: 300 MG, QOW
     Route: 065
  2. DUPIXENT [Suspect]
     Active Substance: DUPILUMAB
     Indication: Chronic spontaneous urticaria

REACTIONS (5)
  - Upper-airway cough syndrome [Recovering/Resolving]
  - Product dose omission issue [Unknown]
  - Bronchitis [Unknown]
  - Cough [Unknown]
  - Product use in unapproved indication [Unknown]

NARRATIVE: CASE EVENT DATE: 20250101
